FAERS Safety Report 24815949 (Version 1)
Quarter: 2025Q1

REPORT INFORMATION
  Report Type: Spontaneous
  Country: TR (occurrence: TR)
  Receive Date: 20250107
  Receipt Date: 20250107
  Transmission Date: 20250408
  Serious: Yes (Other)
  Sender: RANBAXY
  Company Number: TR-SUN PHARMACEUTICAL INDUSTRIES LTD-2024R1-487883

PATIENT
  Age: 43 Year
  Sex: Female

DRUGS (2)
  1. CARBOPLATIN [Suspect]
     Active Substance: CARBOPLATIN
     Indication: Hyperglycaemia
     Route: 065
     Dates: start: 202305, end: 202307
  2. PACLITAXEL [Suspect]
     Active Substance: PACLITAXEL
     Indication: Hyperglycaemia
     Route: 065
     Dates: start: 202305, end: 202307

REACTIONS (1)
  - Disease progression [Unknown]
